FAERS Safety Report 9549257 (Version 4)
Quarter: 2014Q2

REPORT INFORMATION
  Report Type: Spontaneous
  Country: US (occurrence: US)
  Receive Date: 20130924
  Receipt Date: 20140626
  Transmission Date: 20141212
  Serious: Yes (Hospitalization, Other)
  Sender: FDA-Public Use
  Company Number: US-GILEAD-2013-0082592

PATIENT
  Sex: Female
  Weight: 95.11 kg

DRUGS (23)
  1. LETAIRIS [Suspect]
     Indication: PULMONARY HYPERTENSION
     Dosage: 5 MG, UNK
     Route: 065
     Dates: start: 20130808
  2. LETAIRIS [Suspect]
     Indication: SLEEP APNOEA SYNDROME
     Dosage: 10 UNK, UNK
     Route: 065
     Dates: start: 20131112
  3. LETAIRIS [Suspect]
     Indication: SYSTEMIC LUPUS ERYTHEMATOSUS
  4. ZOSYN [Concomitant]
  5. VANCOMYCIN [Concomitant]
  6. BENZOCAINE-MENTHOL [Concomitant]
  7. ESOMEPRAZOLE [Concomitant]
  8. DIAZEPAM [Concomitant]
  9. AMYLASE W/LIPASE/PROTEASE [Concomitant]
  10. GABAPENTIN [Concomitant]
  11. ONDANSETRON [Concomitant]
  12. SODIUM CHLORIDE [Concomitant]
  13. HEPARIN [Concomitant]
  14. INSULIN [Concomitant]
  15. ACETAMINOPHEN [Concomitant]
  16. NYSTATIN [Concomitant]
  17. ALLOPURINOL [Concomitant]
  18. ASPIRIN [Concomitant]
  19. CITALOPRAM [Concomitant]
  20. CYCLOBENZAPRINE [Concomitant]
  21. LEVOTHYROXINE [Concomitant]
  22. TORSEMIDE [Concomitant]
  23. TADALAFIL [Concomitant]

REACTIONS (5)
  - Bile duct stone [Unknown]
  - Pyrexia [Recovered/Resolved]
  - Liver function test abnormal [Recovered/Resolved]
  - Vomiting [Unknown]
  - Nausea [Unknown]
